FAERS Safety Report 5216584-X (Version None)
Quarter: 2007Q1

REPORT INFORMATION
  Report Type: 
  Country: None (occurrence: None)
  Receive Date: 20061130
  Receipt Date: 20060811
  Transmission Date: 20070707
  Serious: Yes (Hospitalization)
  Sender: FDA-Public Use
  Company Number: US200608002788

PATIENT
  Age: 28 Year
  Sex: Female

DRUGS (1)
  1. ZYPREXA [Suspect]
     Dosage: SEE IMAGE

REACTIONS (4)
  - DRUG EXPOSURE DURING PREGNANCY [None]
  - DRUG EXPOSURE VIA BREAST MILK [None]
  - PYREXIA [None]
  - TACHYCARDIA [None]
